FAERS Safety Report 25326913 (Version 1)
Quarter: 2025Q2

REPORT INFORMATION
  Report Type: Spontaneous
  Country: US (occurrence: US)
  Receive Date: 20250517
  Receipt Date: 20250517
  Transmission Date: 20250717
  Serious: No
  Sender: ODIN PHARMACEUTICALS
  Company Number: USA--2024-US-000862

PATIENT
  Age: 77 Year
  Sex: Female

DRUGS (1)
  1. LATANOPROST [Suspect]
     Active Substance: LATANOPROST

REACTIONS (2)
  - Eye pain [Recovered/Resolved]
  - Headache [Recovering/Resolving]

NARRATIVE: CASE EVENT DATE: 20241028
